FAERS Safety Report 5517842-1 (Version None)
Quarter: 2007Q4

REPORT INFORMATION
  Report Type: 
  Country: None (occurrence: None)
  Receive Date: 20071113
  Receipt Date: 20071031
  Transmission Date: 20080405
  Serious: Yes (Hospitalization)
  Sender: FDA-Public Use
  Company Number: MESA-2007-037

PATIENT
  Age: 52 Year
  Sex: Female

DRUGS (1)
  1. MESALAMINE [Suspect]
     Dosage: 1000MG, QD,

REACTIONS (4)
  - APLASTIC ANAEMIA [None]
  - BONE MARROW FAILURE [None]
  - PETECHIAE [None]
  - RECTAL HAEMORRHAGE [None]
